FAERS Safety Report 5474098-6 (Version None)
Quarter: 2007Q3

REPORT INFORMATION
  Report Type: 
  Country: None (occurrence: None)
  Receive Date: 20070928
  Receipt Date: 20070928
  Transmission Date: 20080115
  Serious: Yes (Other)
  Sender: FDA-Public Use
  Company Number: None

PATIENT
  Sex: Female
  Weight: 68.9467 kg

DRUGS (2)
  1. AMLODIPINE [Suspect]
     Indication: CORONARY ARTERY DISEASE
     Dosage: 5 MG TABS ONCE PO QD ORAL
     Route: 048
     Dates: start: 20070703, end: 20070715
  2. AMLODIPINE [Suspect]
     Indication: HYPERTENSION
     Dosage: 5 MG TABS ONCE PO QD ORAL
     Route: 048
     Dates: start: 20070703, end: 20070715

REACTIONS (2)
  - CONSTIPATION [None]
  - PHARMACEUTICAL PRODUCT COMPLAINT [None]
